FAERS Safety Report 9251372 (Version 1)
Quarter: 2013Q1

REPORT INFORMATION
  Report Type: Spontaneous
  Country: US (occurrence: None)
  Receive Date: 20130305
  Receipt Date: 20130305
  Transmission Date: 20140127
  Serious: Yes (Hospitalization)
  Sender: FDA-Public Use
  Company Number: 163-21880-12082036

PATIENT
  Age: 68 Year
  Sex: Female
  Weight: 65.6 kg

DRUGS (9)
  1. REVLIMID [Suspect]
     Indication: PLASMA CELL MYELOMA
     Dosage: 18.75 MG, 21 IN 28 D, PO
     Route: 048
     Dates: start: 201101
  2. ASA (ACETYLSALICYLIC ACID) (UNKNOWN) [Concomitant]
  3. CALCIUM + VITAMIN D (LEKOVITCA) (UNKNOWN_ [Concomitant]
  4. LEXAPRO (ESCITALOPRAM OXALATE) (TABLETS) [Concomitant]
  5. DEXAMETHASONE (DEXAMETHASONE) (UNKNOWN) [Concomitant]
  6. CLARITIN (LORATADINE) (UNKNOWN) [Concomitant]
  7. NASONEX (MOMETASONE FUROATE) (UNKNOWN) [Concomitant]
  8. PROTONIX (UNKNOWN) [Concomitant]
  9. K-DUR (POTASSIUM CHLORIDE) (UNKNOWN) [Concomitant]

REACTIONS (1)
  - Deep vein thrombosis [None]
